FAERS Safety Report 9158664 (Version 1)
Quarter: 2013Q1

REPORT INFORMATION
  Report Type: Spontaneous
  Country: US (occurrence: US)
  Receive Date: 20130312
  Receipt Date: 20130312
  Transmission Date: 20140127
  Serious: Yes (Hospitalization, Other)
  Sender: FDA-Public Use
  Company Number: US-ELI_LILLY_AND_COMPANY-US201303001434

PATIENT
  Age: 63 Year
  Sex: Female

DRUGS (4)
  1. HUMULIN REGULAR [Suspect]
     Indication: TYPE 1 DIABETES MELLITUS
     Dosage: UNK, PRN
  2. HUMULIN NPH [Suspect]
     Indication: TYPE 1 DIABETES MELLITUS
     Dosage: 50 U, QD
  3. ILETIN BEEF/PORK LENTE [Suspect]
     Indication: TYPE 1 DIABETES MELLITUS
  4. LEVEMIR [Concomitant]
     Dosage: UNK

REACTIONS (5)
  - Myocardial infarction [Unknown]
  - Uterine cancer [Unknown]
  - Hypothyroidism [Not Recovered/Not Resolved]
  - Blood cholesterol increased [Unknown]
  - Visual impairment [Unknown]
